FAERS Safety Report 9154117 (Version 3)
Quarter: 2013Q2

REPORT INFORMATION
  Report Type: Spontaneous
  Country: US (occurrence: None)
  Receive Date: 20130307
  Receipt Date: 20130401
  Transmission Date: 20140414
  Serious: Yes (Death, Other)
  Sender: FDA-Public Use
  Company Number: 2013US-004617

PATIENT
  Age: 51 Year
  Sex: Female
  Weight: 104.5 kg

DRUGS (21)
  1. OMONTYS (PEGINESATIDE) SOLUTION FOR INJECTION [Suspect]
     Indication: NEPHROGENIC ANAEMIA
     Dosage: 15 MG, Q 4 WEEKS, INTRAVENOUS
     Route: 042
     Dates: start: 20130218, end: 20130218
  2. HEPARIN (HEPARIN) [Concomitant]
  3. EPOGEN (EPOETIN ALFA) [Concomitant]
  4. TYLENOL (PARACETAMOL) [Concomitant]
  5. SODIUM POLYSTYRENE SULFONATE (SODIUM POLYSTYRENE SULFONATE) [Concomitant]
  6. CLARITIN (GLICLAZIDE) [Concomitant]
  7. NEPHROCAPS (ASCORBIC ACID, BIOTIN, CYANOCOBALAMIN, FOLIC ACID, NICOTINAMIDE, PANTOTHENIC ACID, PYRIDOXINE HYDROCHLORIDE, RIBOFLAVIN, THIAMINE HYDROCHLORIDE) [Concomitant]
  8. METOPROLOL (METOPROLOL) [Concomitant]
  9. CARDURA (DOXAZOSIN MESILATE) [Concomitant]
  10. LOTENSIN (BENAZEPRIL HYDROCHLORIDE) [Concomitant]
  11. MUCINEX (GUAIFENESIN) [Concomitant]
  12. NOVOLOG (INSULIN ASPART) [Concomitant]
  13. LEVEMIR (INSULIN DETEMIR) [Concomitant]
  14. ASPIRIN (ACETYLSALICYLIC ACID) [Concomitant]
  15. NORVASC (AMLODIPINE BESILATE) [Concomitant]
  16. PHOSLO (CALCIUM ACETATE) [Concomitant]
  17. ZOCOR (SIMVASTATIN) [Concomitant]
  18. SENSIPAR (CINACALCET HYDROCHLORIDE) [Concomitant]
  19. DEXTROSE 50% (GLUCOSE) [Concomitant]
  20. PLAVIX (CLOPIDOGREL BISULFATE) [Concomitant]
  21. LISINOPRIL (LISINOPRIL) [Concomitant]

REACTIONS (14)
  - Cardiac arrest [None]
  - Apnoea [None]
  - Unresponsive to stimuli [None]
  - Hypotension [None]
  - Haemoglobin decreased [None]
  - Face oedema [None]
  - Vomiting [None]
  - Malaise [None]
  - Nausea [None]
  - Injection site extravasation [None]
  - Heart rate decreased [None]
  - Pulse absent [None]
  - Abdominal pain [None]
  - Malaise [None]
